FAERS Safety Report 8570030 (Version 2)
Quarter: 2013Q4

REPORT INFORMATION
  Report Type: Spontaneous
  Country: US (occurrence: US)
  Receive Date: 20120518
  Receipt Date: 20131204
  Transmission Date: 20140711
  Serious: Yes (Other)
  Sender: FDA-Public Use
  Company Number: US-ROCHE-1069741

PATIENT
  Sex: Male
  Weight: 99.88 kg

DRUGS (5)
  1. ACCUTANE [Suspect]
     Indication: ACNE
     Route: 048
     Dates: start: 20020916, end: 20030702
  2. ACCUTANE [Suspect]
     Route: 048
     Dates: start: 200301, end: 200303
  3. ACCUTANE [Suspect]
     Route: 048
     Dates: start: 20021202
  4. ACCUTANE [Suspect]
     Route: 048
     Dates: start: 20021223
  5. ACCUTANE [Suspect]
     Route: 048
     Dates: start: 20030402

REACTIONS (9)
  - Crohn^s disease [Unknown]
  - Injury [Unknown]
  - Inflammatory bowel disease [Unknown]
  - Depression [Unknown]
  - Stress [Unknown]
  - Irritable bowel syndrome [Unknown]
  - Oropharyngeal pain [Unknown]
  - Alanine aminotransferase increased [Unknown]
  - Blood triglycerides increased [Unknown]
